FAERS Safety Report 25340817 (Version 1)
Quarter: 2025Q2

REPORT INFORMATION
  Report Type: Spontaneous
  Country: PL (occurrence: PL)
  Receive Date: 20250521
  Receipt Date: 20250521
  Transmission Date: 20250717
  Serious: Yes (Disabling, Other)
  Sender: BOEHRINGER INGELHEIM
  Company Number: PL-CELONPHARMA-24_2025_QUETIAPINE

PATIENT
  Age: 55 Year
  Sex: Female
  Weight: 92 kg

DRUGS (8)
  1. HYDROCHLOROTHIAZIDE\TELMISARTAN [Suspect]
     Active Substance: HYDROCHLOROTHIAZIDE\TELMISARTAN
     Indication: Hypertension
     Dosage: 80 MG + 25 MG
  2. QUETIAPINE FUMARATE [Suspect]
     Active Substance: QUETIAPINE FUMARATE
     Indication: Mixed anxiety and depressive disorder
     Dates: start: 20240710, end: 20250226
  3. QUETIAPINE FUMARATE [Suspect]
     Active Substance: QUETIAPINE FUMARATE
     Dates: start: 20240516, end: 20240710
  4. QUETIAPINE FUMARATE [Suspect]
     Active Substance: QUETIAPINE FUMARATE
     Dates: start: 20230116, end: 20240516
  5. PREGABALIN [Suspect]
     Active Substance: PREGABALIN
     Indication: Neuropathy peripheral
     Dosage: THE INITIAL DOSE WAS 25 MG THREE TIMES A DAY, LATER (PRECISE DATE UNKNOWN) ADJUSTED TO 50 MG TWICE A DAY
  6. PREGABALIN [Suspect]
     Active Substance: PREGABALIN
     Indication: Anxiety
     Dates: start: 20240710
  7. DULOXETINE HYDROCHLORIDE [Suspect]
     Active Substance: DULOXETINE HYDROCHLORIDE
     Indication: Generalised anxiety disorder
  8. DULOXETINE HYDROCHLORIDE [Suspect]
     Active Substance: DULOXETINE HYDROCHLORIDE
     Indication: Depression
     Dosage: THE INITIAL DOSE WAS 30 MG A DAY, LATER (PRECISE DATE UNKNOWN) ADJUSTED TO 60 MG A DAY

REACTIONS (8)
  - Fall [Recovering/Resolving]
  - Somnolence [Recovered/Resolved]
  - Dizziness [Recovered/Resolved]
  - Restless legs syndrome [Recovered/Resolved]
  - Balance disorder [Recovered/Resolved]
  - Lumbar vertebral fracture [Recovering/Resolving]
  - Bone contusion [Recovered/Resolved]
  - Off label use [Recovered/Resolved]

NARRATIVE: CASE EVENT DATE: 20250114
